FAERS Safety Report 16918925 (Version 5)
Quarter: 2020Q4

REPORT INFORMATION
  Report Type: Spontaneous
  Country: US (occurrence: US)
  Receive Date: 20191015
  Receipt Date: 20201215
  Transmission Date: 20210113
  Serious: No
  Sender: FDA-Public Use
  Company Number: US-PFIZER INC-2019436566

PATIENT

DRUGS (1)
  1. ATGAM [Suspect]
     Active Substance: EQUINE THYMOCYTE IMMUNE GLOBULIN
     Dosage: UNK

REACTIONS (2)
  - Skin test positive [Unknown]
  - Drug hypersensitivity [Unknown]
